FAERS Safety Report 11800296 (Version 1)
Quarter: 2015Q4

REPORT INFORMATION
  Report Type: Spontaneous
  Country: CN (occurrence: CN)
  Receive Date: 20151203
  Receipt Date: 20151203
  Transmission Date: 20160305
  Serious: Yes (Hospitalization, Other)
  Sender: FDA-Public Use
  Company Number: CN-GILEAD-2015-0185888

PATIENT
  Age: 49 Year
  Sex: Male

DRUGS (5)
  1. CALCIUM CARBONATE. [Concomitant]
     Active Substance: CALCIUM CARBONATE
     Indication: PRODUCT USED FOR UNKNOWN INDICATION
     Route: 048
  2. ADEFOVIR DIPIVOXIL. [Suspect]
     Active Substance: ADEFOVIR DIPIVOXIL
     Indication: HEPATITIS B
     Dosage: UNK
     Route: 065
     Dates: start: 2007, end: 20110926
  3. CELECOXIB. [Concomitant]
     Active Substance: CELECOXIB
     Indication: PRODUCT USED FOR UNKNOWN INDICATION
     Route: 048
  4. CALCITROL                          /00508501/ [Concomitant]
     Active Substance: CALCIUM CARBONATE\ERGOCALCIFEROL\RETINOL
     Indication: PRODUCT USED FOR UNKNOWN INDICATION
     Route: 048
  5. VOLTAREN [Concomitant]
     Active Substance: DICLOFENAC SODIUM
     Indication: PRODUCT USED FOR UNKNOWN INDICATION
     Route: 048

REACTIONS (20)
  - Hypophosphataemia [Recovering/Resolving]
  - Bone lesion [Unknown]
  - Vomiting [Unknown]
  - Visual field defect [Unknown]
  - Eructation [Unknown]
  - Osteoporosis [Unknown]
  - Visual acuity reduced [Unknown]
  - Cough [Unknown]
  - Bone formation increased [Unknown]
  - Pain [Unknown]
  - Blood creatinine increased [Unknown]
  - Protein urine present [Unknown]
  - Hypoaesthesia [Unknown]
  - Bone density decreased [Unknown]
  - Blood phosphorus decreased [Unknown]
  - Osteomalacia [Recovering/Resolving]
  - Hypokinesia [Unknown]
  - Glucose urine present [Unknown]
  - Nausea [Unknown]
  - Tenderness [Unknown]
